FAERS Safety Report 23824265 (Version 5)
Quarter: 2024Q3

REPORT INFORMATION
  Report Type: Report from Study
  Country: US (occurrence: US)
  Receive Date: 20240507
  Receipt Date: 20240828
  Transmission Date: 20241016
  Serious: Yes (Other)
  Sender: MIRUM PHARMACEUTICALS
  Company Number: MIRUMC-1893

PATIENT
  Age: 10 Year
  Sex: Male

DRUGS (4)
  1. MARALIXIBAT CHLORIDE [Suspect]
     Active Substance: MARALIXIBAT CHLORIDE
     Indication: Congenital absence of bile ducts
     Dosage: UNK
     Route: 048
     Dates: start: 20230415, end: 20230623
  2. RIFAMPIN [Concomitant]
     Active Substance: RIFAMPIN
     Indication: Product used for unknown indication
     Dosage: UNK
     Route: 065
     Dates: end: 202306
  3. URSODIOL [Concomitant]
     Active Substance: URSODIOL
     Indication: Product used for unknown indication
     Dosage: UNK
     Route: 065
  4. DOXEPIN [Concomitant]
     Active Substance: DOXEPIN
     Indication: Product used for unknown indication
     Dosage: UNK
     Route: 065

REACTIONS (9)
  - Congenital absence of bile ducts [Unknown]
  - Condition aggravated [Unknown]
  - Bile acids increased [Unknown]
  - Urinary tract infection [Unknown]
  - International normalised ratio increased [Unknown]
  - Aspartate aminotransferase increased [Recovered/Resolved]
  - Blood bilirubin increased [Unknown]
  - Alanine aminotransferase increased [Recovered/Resolved]
  - Off label use [Recovered/Resolved]

NARRATIVE: CASE EVENT DATE: 20230415
